FAERS Safety Report 7547736-1 (Version None)
Quarter: 2011Q2

REPORT INFORMATION
  Report Type: 
  Country: None (occurrence: None)
  Receive Date: 20110614
  Receipt Date: 20110507
  Transmission Date: 20111010
  Serious: No
  Sender: FDA-Public Use
  Company Number: US-BAYER-2011-040652

PATIENT
  Sex: Female

DRUGS (2)
  1. ALEVE (CAPLET) [Suspect]
     Dosage: 2 DF, ONCE
  2. CORTISONE ACETATE [Concomitant]
     Route: 030

REACTIONS (1)
  - NO ADVERSE EVENT [None]
